FAERS Safety Report 14291676 (Version 1)
Quarter: 2017Q4

REPORT INFORMATION
  Report Type: Spontaneous
  Country: GB (occurrence: GB)
  Receive Date: 20171215
  Receipt Date: 20171215
  Transmission Date: 20180321
  Serious: Yes (Other)
  Sender: FDA-Public Use
  Company Number: GB-TEVA-2017-GB-833204

PATIENT
  Age: 22 Year
  Sex: Male

DRUGS (1)
  1. SOMINEX [Suspect]
     Active Substance: DIPHENHYDRAMINE HYDROCHLORIDE
     Indication: INSOMNIA
     Route: 048
     Dates: start: 20171111, end: 20171112

REACTIONS (2)
  - Abdominal pain upper [Not Recovered/Not Resolved]
  - Dry mouth [Not Recovered/Not Resolved]

NARRATIVE: CASE EVENT DATE: 20171113
